FAERS Safety Report 9284245 (Version 1)
Quarter: 2013Q2

REPORT INFORMATION
  Report Type: Report from Study
  Country: DE (occurrence: DE)
  Receive Date: 20130510
  Receipt Date: 20130510
  Transmission Date: 20140414
  Serious: Yes (Hospitalization)
  Sender: FDA-Public Use
  Company Number: DE-BAXTER-2013BAX016604

PATIENT
  Age: 58 Year
  Sex: Female
  Weight: 93.4 kg

DRUGS (23)
  1. ENDOXAN 1G [Suspect]
     Indication: MALIGNANT LYMPHOID NEOPLASM
     Route: 042
     Dates: start: 20130322, end: 20130405
  2. ENDOXAN 1G [Suspect]
     Route: 042
     Dates: start: 20130408
  3. PREDNISONE [Suspect]
     Indication: MALIGNANT LYMPHOID NEOPLASM
     Route: 048
     Dates: start: 20130322
  4. PREDNISONE [Suspect]
     Route: 048
     Dates: start: 20130326, end: 20130405
  5. PREDNISONE [Suspect]
     Route: 048
     Dates: start: 20130408
  6. ETOPOSIDE [Suspect]
     Indication: MALIGNANT LYMPHOID NEOPLASM
     Route: 042
     Dates: start: 20130322
  7. ETOPOSIDE [Suspect]
     Route: 042
     Dates: start: 20130324, end: 20130405
  8. ETOPOSIDE [Suspect]
     Route: 042
     Dates: start: 20130408
  9. VINCRISTINE [Suspect]
     Indication: MALIGNANT LYMPHOID NEOPLASM
     Route: 040
     Dates: start: 20130322, end: 20130405
  10. VINCRISTINE [Suspect]
     Route: 040
     Dates: start: 20130408
  11. DOXORUBICIN [Suspect]
     Indication: MALIGNANT LYMPHOID NEOPLASM
     Route: 065
     Dates: start: 20130322, end: 20130405
  12. DOXORUBICIN [Suspect]
     Route: 065
     Dates: start: 20130408
  13. RITUXIMAB [Suspect]
     Indication: MALIGNANT LYMPHOID NEOPLASM
     Route: 042
     Dates: start: 20130321, end: 20130404
  14. BISOPROLOL FUMARATE [Concomitant]
     Indication: PRODUCT USED FOR UNKNOWN INDICATION
     Route: 065
     Dates: start: 2012
  15. LISINOPRIL [Concomitant]
     Indication: PRODUCT USED FOR UNKNOWN INDICATION
     Route: 065
  16. LEVOTHYROXINE SODIUM [Concomitant]
     Indication: PRODUCT USED FOR UNKNOWN INDICATION
     Route: 065
  17. ALLOPURINOL [Concomitant]
     Indication: PRODUCT USED FOR UNKNOWN INDICATION
     Route: 065
     Dates: start: 201302
  18. ACICLOVIR [Concomitant]
     Indication: PRODUCT USED FOR UNKNOWN INDICATION
     Route: 065
     Dates: start: 201302
  19. ZOLPIDEM TARTRATE [Concomitant]
     Indication: PRODUCT USED FOR UNKNOWN INDICATION
     Route: 065
     Dates: start: 20130402
  20. ENOXAPARIN SODIUM [Concomitant]
     Indication: PRODUCT USED FOR UNKNOWN INDICATION
     Route: 065
     Dates: start: 20130403
  21. PEGFILGRASTIM [Concomitant]
     Indication: PRODUCT USED FOR UNKNOWN INDICATION
     Route: 065
     Dates: start: 20130325, end: 20130325
  22. PANTOPRAZOLE [Concomitant]
     Indication: PRODUCT USED FOR UNKNOWN INDICATION
     Route: 065
     Dates: start: 201302
  23. SULFAMETHOXAZOLE W/TRIMETHOPRIM [Concomitant]
     Indication: PRODUCT USED FOR UNKNOWN INDICATION
     Dosage: 960 (UNITS NOT REPORTED)
     Route: 065
     Dates: start: 20130330, end: 20130331

REACTIONS (1)
  - General physical health deterioration [Recovered/Resolved]
